FAERS Safety Report 11783152 (Version 1)
Quarter: 2015Q4

REPORT INFORMATION
  Report Type: Spontaneous
  Country: ES (occurrence: ES)
  Receive Date: 20151127
  Receipt Date: 20151127
  Transmission Date: 20160305
  Serious: Yes (Other)
  Sender: FDA-Public Use
  Company Number: ES-BAYER-2015-470307

PATIENT
  Sex: Male

DRUGS (1)
  1. LEVITRA [Suspect]
     Active Substance: VARDENAFIL HYDROCHLORIDE TRIHYDRATE
     Dosage: 20 MG, UNK

REACTIONS (1)
  - Optic ischaemic neuropathy [Recovered/Resolved]
